FAERS Safety Report 9038279 (Version 2)
Quarter: 2015Q4

REPORT INFORMATION
  Report Type: Spontaneous
  Country: US (occurrence: US)
  Receive Date: 20130129
  Receipt Date: 20151009
  Transmission Date: 20160305
  Serious: Yes (Other)
  Sender: FDA-Public Use
  Company Number: US-ROCHE-1046943

PATIENT
  Age: 51 Year
  Sex: Male
  Weight: 90.8 kg

DRUGS (6)
  1. CELEBREX [Concomitant]
     Active Substance: CELECOXIB
  2. ACCUTANE [Suspect]
     Active Substance: ISOTRETINOIN
     Route: 065
     Dates: start: 1987, end: 1989
  3. BABY ASPIRIN [Concomitant]
     Active Substance: ASPIRIN
  4. ACCUTANE [Suspect]
     Active Substance: ISOTRETINOIN
     Route: 065
     Dates: start: 2001, end: 2002
  5. ACCUTANE [Suspect]
     Active Substance: ISOTRETINOIN
     Indication: ACNE
     Route: 065
     Dates: start: 1987, end: 2005
  6. ACCUTANE [Suspect]
     Active Substance: ISOTRETINOIN
     Route: 065
     Dates: start: 1997, end: 1999

REACTIONS (7)
  - Diverticulitis [Unknown]
  - Colitis ulcerative [Unknown]
  - Joint injury [Unknown]
  - Headache [Unknown]
  - Blood cholesterol increased [Unknown]
  - Fatigue [Unknown]
  - Pain in extremity [Unknown]

NARRATIVE: CASE EVENT DATE: 1996
